FAERS Safety Report 9384244 (Version 1)
Quarter: 2013Q3

REPORT INFORMATION
  Report Type: Spontaneous
  Country: US (occurrence: None)
  Receive Date: 20130702
  Receipt Date: 20130702
  Transmission Date: 20140515
  Serious: No
  Sender: FDA-Public Use
  Company Number: None

PATIENT
  Age: 34 Year
  Sex: Male
  Weight: 81.65 kg

DRUGS (1)
  1. CIPROFLOXACIN, 500 MG, WEST-WARD [Suspect]
     Route: 048
     Dates: start: 20120616, end: 20120623

REACTIONS (8)
  - Tendon rupture [None]
  - Nerve injury [None]
  - Muscle atrophy [None]
  - Nasal dryness [None]
  - Dry mouth [None]
  - Dry eye [None]
  - Dry skin [None]
  - Gait disturbance [None]
